FAERS Safety Report 16257931 (Version 1)
Quarter: 2019Q2

REPORT INFORMATION
  Report Type: Report from Study
  Country: IT (occurrence: IT)
  Receive Date: 20190430
  Receipt Date: 20190430
  Transmission Date: 20190711
  Serious: Yes (Hospitalization, Other)
  Sender: FDA-Public Use
  Company Number: IT-BRISTOL-MYERS SQUIBB COMPANY-BMS-2019-039353

PATIENT
  Age: 91 Year
  Sex: Female

DRUGS (3)
  1. WARFARIN SODIUM. [Suspect]
     Active Substance: WARFARIN SODIUM
     Indication: ATRIAL FIBRILLATION
     Dosage: 1 DOSAGE FORM
     Route: 048
     Dates: start: 20040101, end: 20190325
  2. THIOCOLCHICOSIDE [Concomitant]
     Active Substance: THIOCOLCHICOSIDE
     Indication: BACK PAIN
     Dosage: UNK
     Route: 065
     Dates: start: 20190319, end: 20190325
  3. DICLOFENAC [Suspect]
     Active Substance: DICLOFENAC
     Indication: BACK PAIN
     Dosage: UNK
     Route: 048
     Dates: start: 20190319, end: 20190325

REACTIONS (5)
  - Rectal haemorrhage [Recovered/Resolved]
  - Acute myocardial infarction [Not Recovered/Not Resolved]
  - Drug interaction [Recovered/Resolved]
  - Haemoptysis [Recovered/Resolved]
  - Acute pulmonary oedema [Unknown]

NARRATIVE: CASE EVENT DATE: 20060101
